FAERS Safety Report 24245596 (Version 2)
Quarter: 2024Q3

REPORT INFORMATION
  Report Type: Spontaneous
  Country: US (occurrence: US)
  Receive Date: 20240824
  Receipt Date: 20240827
  Transmission Date: 20241017
  Serious: Yes (Life-Threatening, Other)
  Sender: SANDOZ
  Company Number: US-SANDOZ-SDZ2024US074316

PATIENT
  Age: 34 Year
  Sex: Female

DRUGS (1)
  1. DIGOXIN [Suspect]
     Active Substance: DIGOXIN
     Indication: Product used for unknown indication
     Dosage: UNK
     Route: 037

REACTIONS (8)
  - Coma [Unknown]
  - Generalised tonic-clonic seizure [Unknown]
  - Mental status changes [Recovering/Resolving]
  - Paraplegia [Unknown]
  - Amnesia [Unknown]
  - Exposure during pregnancy [Unknown]
  - Incorrect route of product administration [Unknown]
  - Wrong product administered [Unknown]
